FAERS Safety Report 5559097-8 (Version None)
Quarter: 2007Q4

REPORT INFORMATION
  Report Type: 
  Country: None (occurrence: None)
  Receive Date: 20071214
  Receipt Date: 20070914
  Transmission Date: 20080405
  Serious: No
  Sender: FDA-Public Use
  Company Number: US-ABBOTT-07P-163-0417546-00

PATIENT
  Sex: Female
  Weight: 71.732 kg

DRUGS (1)
  1. HUMIRA [Suspect]
     Indication: ANKYLOSING SPONDYLITIS
     Route: 058
     Dates: start: 20070909

REACTIONS (4)
  - NASOPHARYNGITIS [None]
  - PRODUCTIVE COUGH [None]
  - RESPIRATORY TRACT CONGESTION [None]
  - SINUS CONGESTION [None]
